FAERS Safety Report 19739189 (Version 7)
Quarter: 2024Q1

REPORT INFORMATION
  Report Type: Report from Study
  Country: US (occurrence: US)
  Receive Date: 20210823
  Receipt Date: 20240314
  Transmission Date: 20240410
  Serious: Yes (Hospitalization, Other)
  Sender: FDA-Public Use
  Company Number: US-BAUSCH-BL-2021-028377

PATIENT
  Age: 74 Year
  Sex: Female
  Weight: 95.703 kg

DRUGS (14)
  1. XIFAXAN [Suspect]
     Active Substance: RIFAXIMIN
     Indication: Hepatic encephalopathy
     Route: 048
     Dates: start: 2018, end: 20210624
  2. XIFAXAN [Suspect]
     Active Substance: RIFAXIMIN
     Indication: Hepatic cirrhosis
     Dosage: RESTART DOSE
     Route: 048
  3. LACTULOSE [Suspect]
     Active Substance: LACTULOSE
     Indication: Hepatic cirrhosis
     Dosage: 1 PACKET DISSOLVED IN WATER ONCE A DAY AS NEEDED
     Route: 065
  4. LACTULOSE [Suspect]
     Active Substance: LACTULOSE
     Indication: Hepatic encephalopathy
  5. PROAIR HFA [Concomitant]
     Active Substance: ALBUTEROL SULFATE
     Indication: Asthma
     Dosage: INHALER, DOSE: AS NEEDED 90MCG/ACTUATION, INHALE 1 PUFF EVERY 4 HOURS AS NEEDED
     Route: 055
  6. VITAMIN D3 [Concomitant]
     Active Substance: CHOLECALCIFEROL
     Indication: Product used for unknown indication
     Dosage: 50 MCG (2000 UNIT)
     Route: 048
  7. LACTASE [Concomitant]
     Active Substance: LACTASE
     Indication: Product used for unknown indication
     Dosage: DOSE: AS NEEDED
     Route: 048
  8. FUROSEMIDE [Concomitant]
     Active Substance: FUROSEMIDE
     Indication: Fluid imbalance
     Route: 048
  9. FUROSEMIDE [Concomitant]
     Active Substance: FUROSEMIDE
     Indication: Hepatic cirrhosis
  10. SPIRONOLACTONE [Concomitant]
     Active Substance: SPIRONOLACTONE
     Indication: Portal hypertension
     Route: 048
  11. BENZONATATE [Concomitant]
     Active Substance: BENZONATATE
     Indication: Cough
     Dosage: AS NEEDED
     Route: 048
     Dates: end: 20240110
  12. GUAIFENESIN [Concomitant]
     Active Substance: GUAIFENESIN
     Indication: Pulmonary congestion
     Dosage: EXTENDED RELEASE TABLET, TAKE 1 TABLET TWICE A DAY AS NEEDED
     Route: 048
     Dates: end: 20240110
  13. PATADAY [Concomitant]
     Active Substance: OLOPATADINE HYDROCHLORIDE
     Indication: Product used for unknown indication
     Dosage: ONCE DAILY REFILL, 1 DROP IN BOT EYES ONCE A DAY
     Route: 047
  14. LISINOPRIL [Concomitant]
     Active Substance: LISINOPRIL
     Indication: Renal disorder
     Route: 048

REACTIONS (9)
  - Thrombosis [Recovered/Resolved]
  - Abdominal distension [Not Recovered/Not Resolved]
  - Abdominal pain [Recovered/Resolved]
  - Malaise [Recovered/Resolved]
  - Diarrhoea [Unknown]
  - Muscle spasms [Not Recovered/Not Resolved]
  - Oedema peripheral [Unknown]
  - Therapy interrupted [Unknown]
  - Inability to afford medication [Unknown]

NARRATIVE: CASE EVENT DATE: 20191214
